FAERS Safety Report 10356913 (Version 1)
Quarter: 2014Q3

REPORT INFORMATION
  Report Type: Spontaneous
  Country: JP (occurrence: JP)
  Receive Date: 20140801
  Receipt Date: 20140801
  Transmission Date: 20150326
  Serious: Yes (Death, Other)
  Sender: FDA-Public Use
  Company Number: PHHY2014JP092079

PATIENT
  Age: 93 Year
  Sex: Male

DRUGS (2)
  1. RIFAMPICIN [Suspect]
     Active Substance: RIFAMPIN
     Indication: PULMONARY TUBERCULOSIS
     Dosage: 450 MG/DAY
  2. ISONIAZID. [Suspect]
     Active Substance: ISONIAZID
     Indication: PULMONARY TUBERCULOSIS
     Dosage: 300 MG/DAY
     Route: 048

REACTIONS (6)
  - Renal failure [Unknown]
  - Septic shock [Fatal]
  - Azotaemia [Unknown]
  - Rhabdomyolysis [Unknown]
  - Myoglobin blood increased [Unknown]
  - Shock [Unknown]
